FAERS Safety Report 6778794-X (Version None)
Quarter: 2010Q2

REPORT INFORMATION
  Report Type: 
  Country: None (occurrence: None)
  Receive Date: 20100618
  Receipt Date: 20090730
  Transmission Date: 20101027
  Serious: No
  Sender: FDA-Public Use
  Company Number: A0799685A

PATIENT
  Age: 71 Year
  Sex: Female

DRUGS (9)
  1. HYCAMTIN [Suspect]
     Dosage: 3MGM2 WEEKLY
     Route: 042
     Dates: start: 20090716, end: 20090730
  2. POTASSIUM [Concomitant]
  3. IMDUR [Concomitant]
     Dosage: 30MGD PER DAY
  4. REGLAN [Concomitant]
  5. MAGNESIUM [Concomitant]
  6. PEPCID [Concomitant]
  7. CALCIUM CARBONATE [Concomitant]
  8. HCTZ [Concomitant]
  9. DILAUDID [Concomitant]

REACTIONS (1)
  - RASH [None]
